FAERS Safety Report 10204117 (Version 1)
Quarter: 2014Q2

REPORT INFORMATION
  Report Type: Spontaneous
  Country: CZ (occurrence: None)
  Receive Date: 20140523
  Receipt Date: 20140523
  Transmission Date: 20141212
  Serious: Yes (Hospitalization)
  Sender: FDA-Public Use
  Company Number: SP07835

PATIENT
  Age: 52 Year
  Sex: Female
  Weight: 60 kg

DRUGS (6)
  1. MOVIPREP (SOLUTION) [Suspect]
     Indication: BOWEL PREPARATION
     Dosage: 1 DOSAGE FORMS (1 DOSAGE FORMS, I IN 1 D)
     Route: 048
     Dates: start: 20140220, end: 20140220
  2. OCTOSTIM [Suspect]
  3. BELOC [Concomitant]
  4. TARTRATE [Concomitant]
  5. CYKLOKAPRON [Concomitant]
  6. HAEMATE [Concomitant]

REACTIONS (6)
  - Vertigo [None]
  - Nausea [None]
  - Vomiting [None]
  - Tremor [None]
  - Mucosal dryness [None]
  - Dehydration [None]
